FAERS Safety Report 4775167-6 (Version None)
Quarter: 2005Q3

REPORT INFORMATION
  Report Type: 
  Country: None (occurrence: None)
  Receive Date: 20050920
  Receipt Date: 20050914
  Transmission Date: 20060218
  Serious: Yes (Hospitalization, Other)
  Sender: FDA-Public Use
  Company Number: USA-2005-0021267

PATIENT
  Age: 30 Year
  Sex: Male

DRUGS (3)
  1. OXYCONTIN [Suspect]
     Indication: PAIN
     Dosage: MG
  2. COCAINE (COCAINE) [Suspect]
  3. ECTASY (MDMA) [Suspect]

REACTIONS (7)
  - DRUG DEPENDENCE [None]
  - HYPERHIDROSIS [None]
  - INCORRECT ROUTE OF DRUG ADMINISTRATION [None]
  - INSOMNIA [None]
  - LOSS OF CONSCIOUSNESS [None]
  - PALLOR [None]
  - POLYSUBSTANCE ABUSE [None]
